FAERS Safety Report 14485632 (Version 1)
Quarter: 2018Q1

REPORT INFORMATION
  Report Type: Spontaneous
  Country: DE (occurrence: DE)
  Receive Date: 20180205
  Receipt Date: 20180205
  Transmission Date: 20180509
  Serious: Yes (Other)
  Sender: FDA-Public Use
  Company Number: DE-ABBVIE-18K-062-2244266-00

PATIENT
  Age: 56 Year
  Sex: Male

DRUGS (9)
  1. FUMADERM [Suspect]
     Active Substance: CALCIUM MONOETHYLFUMARATE\DIMETHYL FUMARATE\MAGNESIUM MONOETHYLFUMARATE\ZINC MONOETHYLFUMARATE
     Indication: PSORIASIS
     Route: 065
     Dates: start: 2001, end: 2005
  2. ENBREL [Suspect]
     Active Substance: ETANERCEPT
     Indication: PSORIASIS
     Dosage: SWITCH TO ENBREL 3 MONTH AFTER START OF TREATMENT WITH HUMIRA
     Route: 065
  3. HUMIRA [Suspect]
     Active Substance: ADALIMUMAB
     Indication: PSORIASIS
     Route: 058
  4. REMICADE [Suspect]
     Active Substance: INFLIXIMAB
     Indication: PSORIASIS
     Route: 065
  5. HUMIRA [Suspect]
     Active Substance: ADALIMUMAB
     Indication: PSORIASIS
     Route: 058
     Dates: start: 2012
  6. METHOTREXATE SODIUM. [Suspect]
     Active Substance: METHOTREXATE SODIUM
     Indication: PSORIASIS
     Route: 065
  7. CYCLOSPORIN A [Suspect]
     Active Substance: CYCLOSPORINE
     Indication: PRODUCT USED FOR UNKNOWN INDICATION
     Route: 065
     Dates: start: 200506
  8. NEOTIGASON [Suspect]
     Active Substance: ACITRETIN
     Indication: PSORIASIS
     Route: 065
  9. CALCIPOTRIOL [Concomitant]
     Active Substance: CALCIPOTRIENE
     Indication: PRODUCT USED FOR UNKNOWN INDICATION
     Route: 061

REACTIONS (10)
  - Malignant melanoma stage I [Recovered/Resolved]
  - Drug ineffective [Unknown]
  - Superficial spreading melanoma stage unspecified [Recovered/Resolved]
  - Therapy non-responder [Recovered/Resolved]
  - Hyperkeratosis [Unknown]
  - Drug effect incomplete [Unknown]
  - Blood pressure increased [Unknown]
  - Keratoacanthoma [Unknown]
  - Keratoacanthoma [Not Recovered/Not Resolved]
  - Malignant melanoma [Recovered/Resolved]

NARRATIVE: CASE EVENT DATE: 200805
